FAERS Safety Report 9870253 (Version 4)
Quarter: 2014Q2

REPORT INFORMATION
  Report Type: Spontaneous
  Country: GB (occurrence: GB)
  Receive Date: 20140205
  Receipt Date: 20140410
  Transmission Date: 20141212
  Serious: Yes (Hospitalization, Disabling)
  Sender: FDA-Public Use
  Company Number: GB-PFIZER INC-2014029358

PATIENT
  Age: 60 Year
  Sex: Female
  Weight: 78.46 kg

DRUGS (8)
  1. EPIRUBICIN HCL [Suspect]
     Indication: BREAST CANCER FEMALE
     Dosage: UNK
     Route: 051
     Dates: start: 200006
  2. FLUOROURACIL [Suspect]
     Indication: BREAST CANCER FEMALE
     Dosage: UNK
     Route: 051
     Dates: start: 200006
  3. CYCLOPHOSPHAMIDE [Suspect]
     Indication: BREAST CANCER FEMALE
     Dosage: UNK
     Route: 051
     Dates: start: 200006
  4. OXYCONTIN [Concomitant]
     Dosage: 1600 MG, 1X/DAY
  5. OXYCONTIN [Concomitant]
     Dosage: 40 MG, UNK REDUCED TO 40MGS.
  6. ADCAL [Concomitant]
     Indication: BONE DISORDER
     Dosage: UNK, DAILY
  7. FORSTEO [Concomitant]
     Indication: BONE DISORDER
     Dosage: UNK
  8. KETAMINE [Concomitant]

REACTIONS (3)
  - Spinal fracture [Not Recovered/Not Resolved]
  - Pain [Unknown]
  - Osteopenia [Unknown]
